FAERS Safety Report 7916459-9 (Version None)
Quarter: 2011Q4

REPORT INFORMATION
  Report Type: 
  Country: None (occurrence: None)
  Receive Date: 20111114
  Receipt Date: 20111104
  Transmission Date: 20120403
  Serious: Yes (Hospitalization)
  Sender: FDA-Public Use
  Company Number: 2011P1008180

PATIENT
  Age: 65 Year
  Sex: Male

DRUGS (18)
  1. OPIUM TINCTURE USP (DEODORIZED) 10MG/ML 16 OZ (NO 1 PREF. NAME) [Suspect]
     Indication: DIARRHOEA
     Dosage: 30 DROPS; TID;
     Dates: start: 20100914, end: 20110803
  2. OPIUM TINCTURE USP (DEODORIZED) 10MG/ML 16 OZ (NO 1 PREF. NAME) [Suspect]
     Indication: PANCREATITIS CHRONIC
     Dosage: 30 DROPS; TID;
     Dates: start: 20100914, end: 20110803
  3. OPIUM TINCTURE USP (DEODORIZED) 10MG/ML 16 OZ (NO 1 PREF. NAME) [Suspect]
     Indication: DIARRHOEA
     Dosage: 30 DROPS; TID;
     Dates: start: 20110804
  4. OPIUM TINCTURE USP (DEODORIZED) 10MG/ML 16 OZ (NO 1 PREF. NAME) [Suspect]
     Indication: PANCREATITIS CHRONIC
     Dosage: 30 DROPS; TID;
     Dates: start: 20110804
  5. LISINOPRIL [Concomitant]
  6. MIRTAZAPINE [Concomitant]
  7. TRAZADONE [Concomitant]
  8. PAROXETINE HCL [Concomitant]
  9. DIGOXIN [Concomitant]
  10. ATENOLOL [Concomitant]
  11. ACETAMINOPHEN AND HYDROCODONE BITARTRATE [Concomitant]
  12. ACETYLSALICYLIC ACID SRT [Concomitant]
  13. METFORMIN HCL [Concomitant]
  14. FLUTICASONE PROP/SALMETEROL [Concomitant]
  15. SIMVASTATIN [Concomitant]
  16. FINASTERIDE [Concomitant]
  17. MULTI-VITAMINS [Concomitant]
  18. PANCRELIPASE [Concomitant]

REACTIONS (8)
  - DIARRHOEA [None]
  - CORONARY ARTERY DISEASE [None]
  - DEHYDRATION [None]
  - BLOOD PRESSURE INCREASED [None]
  - CHEST PAIN [None]
  - WEIGHT DECREASED [None]
  - HEADACHE [None]
  - OCCULT BLOOD POSITIVE [None]
